FAERS Safety Report 6542035-9 (Version None)
Quarter: 2010Q1

REPORT INFORMATION
  Report Type: 
  Country: None (occurrence: None)
  Receive Date: 20100119
  Receipt Date: 20100112
  Transmission Date: 20100710
  Serious: No
  Sender: FDA-Public Use
  Company Number: US-B.I. PHARMACEUTICALS,INC./RIDGEFIELD-2009-BP-14082BP

PATIENT
  Age: 61 Year
  Sex: Male

DRUGS (2)
  1. FLOMAX [Suspect]
     Indication: POLLAKIURIA
     Dosage: 0.4 MG
     Route: 048
     Dates: start: 20091101, end: 20091204
  2. FLOMAX [Suspect]
     Indication: BENIGN PROSTATIC HYPERPLASIA

REACTIONS (2)
  - DRUG INEFFECTIVE [None]
  - POLLAKIURIA [None]
